FAERS Safety Report 5403986-1 (Version None)
Quarter: 2007Q3

REPORT INFORMATION
  Report Type: 
  Country: None (occurrence: None)
  Receive Date: 20070802
  Receipt Date: 20070727
  Transmission Date: 20080115
  Serious: Yes (Death)
  Sender: FDA-Public Use
  Company Number: B0479685A

PATIENT
  Age: 68 Year
  Sex: Female
  Weight: 57 kg

DRUGS (2)
  1. TYKERB [Suspect]
     Route: 048
     Dates: start: 20070614, end: 20070715
  2. XELODA [Suspect]
     Route: 065

REACTIONS (8)
  - ANOREXIA [None]
  - ASPHYXIA [None]
  - BLOOD VISCOSITY INCREASED [None]
  - DIARRHOEA [None]
  - DYSPNOEA [None]
  - GENERAL PHYSICAL HEALTH DETERIORATION [None]
  - HAEMOTHORAX [None]
  - LUNG INFILTRATION [None]
